FAERS Safety Report 8207889-9 (Version None)
Quarter: 2012Q1

REPORT INFORMATION
  Report Type: 
  Country: None (occurrence: None)
  Receive Date: 20120227
  Receipt Date: 20111103
  Transmission Date: 20120608
  Serious: No
  Sender: FDA-Public Use
  Company Number: 340361

PATIENT
  Sex: Female

DRUGS (3)
  1. HUMALOG [Concomitant]
  2. VICTOZA [Suspect]
     Indication: TYPE 1 DIABETES MELLITUS
     Dosage: SUBCUTANEOUS
     Route: 058
  3. LANTUS [Concomitant]

REACTIONS (3)
  - DYSPEPSIA [None]
  - DECREASED APPETITE [None]
  - WEIGHT DECREASED [None]
